FAERS Safety Report 5253506-X (Version None)
Quarter: 2007Q1

REPORT INFORMATION
  Report Type: 
  Country: None (occurrence: None)
  Receive Date: 20070226
  Receipt Date: 20070215
  Transmission Date: 20070707
  Serious: Yes (Other)
  Sender: FDA-Public Use
  Company Number: 2007307665

PATIENT
  Sex: Female
  Weight: 58.0604 kg

DRUGS (5)
  1. NASALCROM [Suspect]
     Indication: PROPHYLAXIS
     Dosage: 1 SQUIRT PER NOSTRIL ONCE AT BED TIME (1 IN 1 D), NASAL
     Route: 045
  2. GABAPENTIN [Concomitant]
  3. FLUDORCORTISONE ACETATE (FLUDORCORTISONE ACETATE) [Concomitant]
  4. SULAR [Concomitant]
  5. LEXAPRO [Concomitant]

REACTIONS (1)
  - DRUG DEPENDENCE [None]
